FAERS Safety Report 18574970 (Version 2)
Quarter: 2021Q2

REPORT INFORMATION
  Report Type: Spontaneous
  Country: US (occurrence: US)
  Receive Date: 20201203
  Receipt Date: 20210510
  Transmission Date: 20210717
  Serious: Yes (Death)
  Sender: FDA-Public Use
  Company Number: US-PFIZER INC-2020469976

PATIENT
  Age: 47 Year
  Sex: Female

DRUGS (14)
  1. METFORMIN [Concomitant]
     Active Substance: METFORMIN HYDROCHLORIDE
     Dosage: 500 MG, DAILY
  2. METFORMIN [Concomitant]
     Active Substance: METFORMIN HYDROCHLORIDE
     Dosage: 1000 MG, DAILY
  3. LITHIUM. [Concomitant]
     Active Substance: LITHIUM
     Indication: OBSESSIVE-COMPULSIVE DISORDER
  4. WELLBUTRIN [Concomitant]
     Active Substance: BUPROPION HYDROCHLORIDE
     Dosage: UNK (400MG)
  5. AMANTADINE. [Concomitant]
     Active Substance: AMANTADINE HYDROCHLORIDE
     Dosage: UNK (200MG)
  6. PREDNISONE. [Suspect]
     Active Substance: PREDNISONE
     Dosage: UNK
  7. ATIVAN [Suspect]
     Active Substance: LORAZEPAM
     Dosage: UNK
  8. LITHIUM. [Concomitant]
     Active Substance: LITHIUM
     Indication: SCHIZOPHRENIA
     Dosage: UNK (600MG)
  9. HALDOL [Concomitant]
     Active Substance: HALOPERIDOL
     Dosage: UNK (2MG)
  10. LEVOTHYROXINE. [Concomitant]
     Active Substance: LEVOTHYROXINE
     Dosage: UNK (37.5UG)
  11. CHLORAL HYDRATE [Concomitant]
     Active Substance: CHLORAL HYDRATE
     Dosage: UNK (THREE TEASPOONS)
  12. CLOZARIL [Concomitant]
     Active Substance: CLOZAPINE
     Dosage: UNK
  13. CLINDAMYCIN. [Suspect]
     Active Substance: CLINDAMYCIN
     Indication: TYMPANIC MEMBRANE PERFORATION
     Dosage: UNK
     Dates: start: 20180925
  14. LORAZEPAM. [Concomitant]
     Active Substance: LORAZEPAM
     Dosage: UNK

REACTIONS (6)
  - Tremor [Recovered/Resolved]
  - Disorganised speech [Recovered/Resolved]
  - Off label use [Unknown]
  - Peripheral swelling [Recovered/Resolved]
  - Renal failure [Fatal]
  - Drug ineffective for unapproved indication [Unknown]

NARRATIVE: CASE EVENT DATE: 20200604
